FAERS Safety Report 18051438 (Version 1)
Quarter: 2020Q3

REPORT INFORMATION
  Report Type: Spontaneous
  Country: US (occurrence: US)
  Receive Date: 20200721
  Receipt Date: 20200721
  Transmission Date: 20201103
  Serious: Yes (Other)
  Sender: FDA-Public Use
  Company Number: US-TEVA-2020-US-1802826

PATIENT
  Age: 26 Year
  Sex: Female

DRUGS (5)
  1. DOXORUBICIN [Suspect]
     Active Substance: DOXORUBICIN
     Indication: OSTEOSARCOMA METASTATIC
     Route: 065
  2. RIBOCICLIB. [Suspect]
     Active Substance: RIBOCICLIB
     Indication: OSTEOSARCOMA METASTATIC
     Dosage: ON DAYS 8?14 INITIALLY, THEN INCREASED TO DAILY DOSING AFTER THE FIRST CYCLE
     Route: 048
  3. GEMCITABINE. [Suspect]
     Active Substance: GEMCITABINE
     Indication: OSTEOSARCOMA METASTATIC
     Dosage: ON DAYS 1 AND 8
     Route: 042
  4. CISPLATIN. [Suspect]
     Active Substance: CISPLATIN
     Indication: OSTEOSARCOMA METASTATIC
     Route: 065
  5. METHOTREXATE. [Suspect]
     Active Substance: METHOTREXATE
     Indication: OSTEOSARCOMA METASTATIC
     Dosage: HIGH?DOSE
     Route: 065

REACTIONS (6)
  - Thrombocytopenia [Unknown]
  - Toxicity to various agents [Unknown]
  - Syncope [Unknown]
  - Nausea [Unknown]
  - Acute kidney injury [Unknown]
  - Oedema peripheral [Unknown]
